FAERS Safety Report 14892776 (Version 1)
Quarter: 2018Q2

REPORT INFORMATION
  Report Type: Spontaneous
  Country: US (occurrence: US)
  Receive Date: 20180426
  Receipt Date: 20180426
  Transmission Date: 20180711
  Serious: Yes (Death, Hospitalization, Disabling)
  Sender: FDA-Public Use
  Company Number: None

PATIENT
  Age: 65 Year
  Sex: Female
  Weight: 84.1 kg

DRUGS (9)
  1. MS CONTIN [Concomitant]
     Active Substance: MORPHINE SULFATE
  2. OXYCODONEACETAMINOPHEN (PERCOCET) [Concomitant]
  3. PRILOSEC [Concomitant]
     Active Substance: OMEPRAZOLE MAGNESIUM
  4. XANAX [Concomitant]
     Active Substance: ALPRAZOLAM
  5. BUDESONIDE-FORMOTEROL (SYMICORN) [Concomitant]
  6. NEURONTIN [Concomitant]
     Active Substance: GABAPENTIN
  7. LISINOPRIL-HYDROCHLOROTHIAZIDE [Concomitant]
     Active Substance: HYDROCHLOROTHIAZIDE\LISINOPRIL
  8. NEXAVAR [Suspect]
     Active Substance: SORAFENIB
     Route: 048
  9. ALBUTEROL (PROAIR HFA) [Concomitant]

REACTIONS (11)
  - Atrial fibrillation [None]
  - Arrhythmia [None]
  - Cardiac arrest [None]
  - Circulatory collapse [None]
  - Sepsis [None]
  - Metastatic neoplasm [None]
  - Cardiomyopathy [None]
  - Peripheral coldness [None]
  - Dyspnoea [None]
  - Systolic dysfunction [None]
  - Staphylococcal bacteraemia [None]

NARRATIVE: CASE EVENT DATE: 20170607
